FAERS Safety Report 24975856 (Version 1)
Quarter: 2025Q1

REPORT INFORMATION
  Report Type: Spontaneous
  Country: FR (occurrence: FR)
  Receive Date: 20250217
  Receipt Date: 20250217
  Transmission Date: 20250409
  Serious: Yes (Hospitalization)
  Sender: SANDOZ
  Company Number: FR-ROCHE-3511441

PATIENT
  Age: 60 Year
  Sex: Male
  Weight: 52 kg

DRUGS (20)
  1. CYCLOPHOSPHAMIDE [Suspect]
     Active Substance: CYCLOPHOSPHAMIDE
     Indication: Diffuse large B-cell lymphoma
     Dosage: START DATE OF MOST RECENT DOSE OF STUDY DRUGPRIOR TO AE/SAE: -FEB-2024
     Route: 042
     Dates: start: 20231228
  2. DOXORUBICIN [Suspect]
     Active Substance: DOXORUBICIN
     Indication: Diffuse large B-cell lymphoma
     Dosage: ON 07-FEB-2024 HE RECEIVED THE MOST RECENT DOSE OF 86MG PRIOR TO THE EVENT.
     Route: 042
     Dates: start: 20231228
  3. GLOFITAMAB [Suspect]
     Active Substance: GLOFITAMAB
     Indication: Diffuse large B-cell lymphoma
     Dosage: ON 14-FEB-2024 SHE RECEIVED THE MOST RECENT DOSE OF 30 MG PRIOR TO THE EVENT.
     Route: 042
     Dates: start: 20240125
  4. PREDNISONE [Suspect]
     Active Substance: PREDNISONE
     Indication: Diffuse large B-cell lymphoma
     Dosage: ON 11-FEB-2024 HE RECEIVED THE MOST RECENT DOSE OF 100 MG PRIOR TO THE EVENT. (PREDNISONE/PREDNISOLO
     Route: 048
     Dates: start: 20231228
  5. BACTRIM [Concomitant]
     Active Substance: SULFAMETHOXAZOLE\TRIMETHOPRIM
     Indication: Product used for unknown indication
     Route: 048
     Dates: start: 20231228
  6. CEFEPIME HYDROCHLORIDE [Concomitant]
     Active Substance: CEFEPIME HYDROCHLORIDE
     Indication: Constipation
     Route: 042
     Dates: start: 20240202, end: 20240206
  7. CEFEPIME HYDROCHLORIDE [Concomitant]
     Active Substance: CEFEPIME HYDROCHLORIDE
     Route: 042
     Dates: start: 20240127, end: 20240129
  8. DEXAMETHASONE [Concomitant]
     Active Substance: DEXAMETHASONE
     Route: 042
     Dates: start: 20240215, end: 20240215
  9. DEXAMETHASONE [Concomitant]
     Active Substance: DEXAMETHASONE
     Indication: Product used for unknown indication
     Dosage: 20.000MG QD
     Route: 042
     Dates: start: 20240125, end: 20240125
  10. DEXAMETHASONE [Concomitant]
     Active Substance: DEXAMETHASONE
     Dosage: 20.000MG QD
     Route: 042
     Dates: start: 20240131, end: 20240131
  11. DEXAMETHASONE [Concomitant]
     Active Substance: DEXAMETHASONE
     Dosage: 20.000MG QD
     Route: 042
     Dates: start: 20240214, end: 20240214
  12. FILGRASTIM [Concomitant]
     Active Substance: FILGRASTIM
     Dosage: 34 IU, QD
     Route: 058
     Dates: start: 20240125, end: 20240129
  13. FILGRASTIM [Concomitant]
     Active Substance: FILGRASTIM
     Indication: Product used for unknown indication
     Dosage: QD
     Route: 042
     Dates: start: 20240215
  14. FILGRASTIM [Concomitant]
     Active Substance: FILGRASTIM
     Dosage: QD
     Route: 042
     Dates: start: 20240215, end: 20240216
  15. POLYETHYLENE GLYCOLS [Concomitant]
     Active Substance: POLYETHYLENE GLYCOLS
     Indication: Constipation
     Dosage: QD
     Route: 048
     Dates: start: 20240125, end: 20240202
  16. NEFOPAM [Concomitant]
     Active Substance: NEFOPAM
     Indication: Constipation
     Route: 042
     Dates: start: 20240125, end: 20240125
  17. POLATUZUMAB VEDOTIN [Concomitant]
     Active Substance: POLATUZUMAB VEDOTIN
     Indication: Diffuse large B-cell lymphoma
     Dosage: ON 07/FEB/2024, HE RECEIVED  MOST RECENT DOSE OF 100 MG. STUDY DRUG PRIOR TO AE/SAE.
     Route: 042
     Dates: start: 20231229
  18. RITUXIMAB [Concomitant]
     Active Substance: RITUXIMAB
     Indication: Diffuse large B-cell lymphoma
     Dosage: START DATE OF MOST RECENT DOSE OF STUDY DRUG PRIOR TO AE/SAE: 07-FEB-2024, 640 MG
     Route: 042
     Dates: start: 20231228
  19. PIPERACILLIN SODIUM\TAZOBACTAM SODIUM [Concomitant]
     Active Substance: PIPERACILLIN SODIUM\TAZOBACTAM SODIUM
     Indication: Product used for unknown indication
     Dosage: 4.000G QD ( 4G/500MG)
     Route: 042
     Dates: start: 20240214, end: 20240216
  20. VALACYCLOVIR HYDROCHLORIDE [Concomitant]
     Active Substance: VALACYCLOVIR HYDROCHLORIDE
     Indication: Product used for unknown indication
     Route: 042
     Dates: start: 20231228

REACTIONS (1)
  - Cytokine release syndrome [Recovered/Resolved]

NARRATIVE: CASE EVENT DATE: 20240214
